FAERS Safety Report 14153092 (Version 7)
Quarter: 2018Q2

REPORT INFORMATION
  Report Type: Spontaneous
  Country: JP (occurrence: JP)
  Receive Date: 20171102
  Receipt Date: 20180424
  Transmission Date: 20180711
  Serious: Yes (Death, Other)
  Sender: FDA-Public Use
  Company Number: JP-009507513-1703JPN003059J

PATIENT
  Age: 67 Year
  Sex: Male
  Weight: 61 kg

DRUGS (4)
  1. CODEINE PHOSPHATE [Concomitant]
     Active Substance: CODEINE PHOSPHATE
     Indication: SQUAMOUS CELL CARCINOMA OF LUNG
     Dosage: 10 MG, QID
     Route: 048
  2. KEYTRUDA [Suspect]
     Active Substance: PEMBROLIZUMAB
     Indication: SQUAMOUS CELL CARCINOMA OF LUNG
     Dosage: 200 MG, Q3W
     Route: 041
     Dates: start: 20170329, end: 20170511
  3. TAKECAB [Concomitant]
     Active Substance: VONOPRAZAN FUMURATE
     Indication: SQUAMOUS CELL CARCINOMA OF LUNG
     Dosage: 20 MG, QD
     Route: 048
  4. RINDERON VG [Concomitant]
     Active Substance: BETAMETHASONE VALERATE\GENTAMICIN SULFATE
     Indication: DERMATITIS PSORIASIFORM
     Dosage: UNK
     Route: 061

REACTIONS (3)
  - Dermatitis psoriasiform [Recovering/Resolving]
  - Malignant neoplasm progression [Fatal]
  - Pyrexia [Recovered/Resolved]

NARRATIVE: CASE EVENT DATE: 20170329
